FAERS Safety Report 8867594 (Version 1)
Quarter: 2012Q4

REPORT INFORMATION
  Report Type: 
  Country: US (occurrence: US)
  Receive Date: 20121025
  Receipt Date: 20121025
  Transmission Date: 20130627
  Serious: No
  Sender: FDA-Public Use
  Company Number: US-AMGEN-USASP2012017494

PATIENT
  Age: 50 Year
  Sex: Female

DRUGS (7)
  1. ENBREL [Suspect]
     Indication: PRODUCT USED FOR UNKNOWN INDICATION
     Dosage: 50 mg, qwk
  2. ALEVE [Concomitant]
     Dosage: 220 mg, UNK
  3. TYLENOL /00020001/ [Concomitant]
  4. VITAMIN D3 [Concomitant]
  5. CAL-MAG                            /01226301/ [Concomitant]
  6. FISH OIL [Concomitant]
  7. BABY ASPIRIN [Concomitant]
     Dosage: 81 mg, UNK

REACTIONS (2)
  - Arthrodesis [Unknown]
  - Injection site bruising [Unknown]
